FAERS Safety Report 14575107 (Version 1)
Quarter: 2018Q1

REPORT INFORMATION
  Report Type: Spontaneous
  Country: US (occurrence: US)
  Receive Date: 20180227
  Receipt Date: 20180227
  Transmission Date: 20180509
  Serious: No
  Sender: FDA-Public Use
  Company Number: US-ROCHE-2026902

PATIENT
  Sex: Female

DRUGS (2)
  1. XOLAIR [Suspect]
     Active Substance: OMALIZUMAB
     Indication: PRODUCT USED FOR UNKNOWN INDICATION
     Dosage: STOPPED AFTER 2 DOSES
     Route: 065
     Dates: start: 2009
  2. XOLAIR [Suspect]
     Active Substance: OMALIZUMAB
     Dosage: RE-STARTED
     Route: 065
     Dates: start: 20170211

REACTIONS (4)
  - Sinus headache [Unknown]
  - Headache [Unknown]
  - Arthralgia [Unknown]
  - Nasal congestion [Unknown]
